FAERS Safety Report 5619933-3 (Version None)
Quarter: 2008Q1

REPORT INFORMATION
  Report Type: 
  Country: None (occurrence: None)
  Receive Date: 20080208
  Receipt Date: 20070919
  Transmission Date: 20080703
  Serious: No
  Sender: FDA-Public Use
  Company Number: US-ABBOTT-07P-163-0417769-00

PATIENT
  Sex: Male

DRUGS (1)
  1. VICODIN [Suspect]
     Indication: PAIN
     Dosage: 5/500, 1 TAB EVERY 4 HOURS AS REQUIRED
     Route: 048
     Dates: start: 20070830

REACTIONS (1)
  - DRUG INEFFECTIVE [None]
